FAERS Safety Report 14923222 (Version 1)
Quarter: 2018Q2

REPORT INFORMATION
  Report Type: Spontaneous
  Country: US (occurrence: US)
  Receive Date: 20180503
  Receipt Date: 20180503
  Transmission Date: 20180711
  Serious: No
  Sender: FDA-Public Use
  Company Number: None

PATIENT
  Age: 52 Year
  Sex: Male
  Weight: 69.3 kg

DRUGS (15)
  1. LIDOCAINE PATCH 5% [Suspect]
     Active Substance: LIDOCAINE
     Indication: BACK PAIN
     Dosage: QUANTITY:30 PATCH(ES);?
     Route: 062
     Dates: start: 20180411, end: 20180503
  2. VITAMIN B12 [Concomitant]
     Active Substance: CYANOCOBALAMIN
  3. PERCOCET [Concomitant]
     Active Substance: ACETAMINOPHEN\OXYCODONE HYDROCHLORIDE
  4. CENTRUM SILVER [Concomitant]
     Active Substance: MINERALS\VITAMINS
  5. ALFUZOSIN [Concomitant]
     Active Substance: ALFUZOSIN
  6. ASPIRIN. [Concomitant]
     Active Substance: ASPIRIN
  7. TURMERIC CURCUMIN [Concomitant]
     Active Substance: HERBALS\TURMERIC
  8. VITAMIN C [Suspect]
     Active Substance: ASCORBIC ACID
  9. RANITIDINE. [Concomitant]
     Active Substance: RANITIDINE
  10. MIRTAZAPINE. [Concomitant]
     Active Substance: MIRTAZAPINE
  11. SERTRALINE HCL [Concomitant]
     Active Substance: SERTRALINE HYDROCHLORIDE
  12. TYLENOL [Concomitant]
     Active Substance: ACETAMINOPHEN
  13. FLAXSEED [Concomitant]
     Active Substance: FLAX SEED
  14. LIDOCAINE PATCH 5% [Suspect]
     Active Substance: LIDOCAINE
     Indication: SPINAL FUSION SURGERY
     Dosage: QUANTITY:30 PATCH(ES);?
     Route: 062
     Dates: start: 20180411, end: 20180503
  15. ZYRTEC [Concomitant]
     Active Substance: CETIRIZINE HYDROCHLORIDE

REACTIONS (6)
  - Product adhesion issue [None]
  - Product substitution issue [None]
  - Wrong technique in device usage process [None]
  - Device malfunction [None]
  - Drug ineffective [None]
  - Product physical issue [None]

NARRATIVE: CASE EVENT DATE: 20180411
